FAERS Safety Report 4742530-9 (Version None)
Quarter: 2005Q3

REPORT INFORMATION
  Report Type: 
  Country: None (occurrence: None)
  Receive Date: 20050808
  Receipt Date: 20050727
  Transmission Date: 20060218
  Serious: Yes (Other)
  Sender: FDA-Public Use
  Company Number: USA050392067

PATIENT
  Age: 82 Year
  Sex: Female
  Weight: 45 kg

DRUGS (2)
  1. FORTEO [Suspect]
     Indication: BONE DENSITY DECREASED
     Dosage: 20 UG/1 DAY
     Dates: start: 20050118
  2. FORTEO [Suspect]
     Indication: DRUG INEFFECTIVE
     Dosage: 20 UG/1 DAY
     Dates: start: 20050118

REACTIONS (4)
  - DEVICE FAILURE [None]
  - HEART VALVE INSUFFICIENCY [None]
  - INJECTION SITE PAIN [None]
  - PHARMACEUTICAL PRODUCT COMPLAINT [None]
